FAERS Safety Report 25343528 (Version 2)
Quarter: 2025Q2

REPORT INFORMATION
  Report Type: Report from Study
  Country: US (occurrence: US)
  Receive Date: 20250521
  Receipt Date: 20250530
  Transmission Date: 20250716
  Serious: Yes (Hospitalization)
  Sender: MALLINCKRODT
  Company Number: US-MALLINCKRODT-MNK202502543

PATIENT
  Sex: Female
  Weight: 127 kg

DRUGS (15)
  1. CORTICOTROPIN [Suspect]
     Active Substance: CORTICOTROPIN
     Indication: Rheumatoid arthritis
     Route: 058
  2. CORTICOTROPIN [Suspect]
     Active Substance: CORTICOTROPIN
     Indication: Rheumatoid arthritis
  3. ENBREL [Concomitant]
     Active Substance: ETANERCEPT
  4. AZATHIOPRINE [Concomitant]
     Active Substance: AZATHIOPRINE
  5. RHOPRESSA [Concomitant]
     Active Substance: NETARSUDIL MESYLATE
  6. FENTANYL [Concomitant]
     Active Substance: FENTANYL
  7. BRIMONIDINE TARTRATE [Concomitant]
     Active Substance: BRIMONIDINE TARTRATE
  8. MINERALS\VITAMINS [Concomitant]
     Active Substance: MINERALS\VITAMINS
  9. CALCITRIOL [Concomitant]
     Active Substance: CALCITRIOL
  10. ACETAMINOPHEN\HYDROCODONE [Concomitant]
     Active Substance: ACETAMINOPHEN\HYDROCODONE
  11. YUPELRI [Concomitant]
     Active Substance: REVEFENACIN
  12. PROLIA [Concomitant]
     Active Substance: DENOSUMAB
  13. PERFOROMIST [Concomitant]
     Active Substance: FORMOTEROL FUMARATE DIHYDRATE
  14. HYDROCHLOROTHIAZIDE\TRIAMTERENE [Concomitant]
     Active Substance: HYDROCHLOROTHIAZIDE\TRIAMTERENE
  15. LATANOPROST [Concomitant]
     Active Substance: LATANOPROST

REACTIONS (6)
  - Pneumonia [Unknown]
  - Hypoacusis [Unknown]
  - Visual impairment [Unknown]
  - Swelling face [Unknown]
  - Oedema [Unknown]
  - Asthenia [Unknown]
